FAERS Safety Report 8548498-1 (Version None)
Quarter: 2012Q3

REPORT INFORMATION
  Report Type: 
  Country: None (occurrence: None)
  Receive Date: 20120730
  Receipt Date: 20120718
  Transmission Date: 20120928
  Serious: No
  Sender: FDA-Public Use
  Company Number: US-009507513-2012SP035894

PATIENT

DRUGS (2)
  1. NEXPLANON [Suspect]
     Dates: start: 20120625
  2. NEXPLANON [Suspect]
     Dates: start: 20120625, end: 20120625

REACTIONS (1)
  - MEDICAL DEVICE COMPLICATION [None]
